FAERS Safety Report 8416666-5 (Version None)
Quarter: 2012Q2

REPORT INFORMATION
  Report Type: 
  Country: None (occurrence: None)
  Receive Date: 20120530
  Receipt Date: 20120521
  Transmission Date: 20120825
  Serious: Yes (Other)
  Sender: FDA-Public Use
  Company Number: B0804120A

PATIENT
  Age: 78 Year
  Sex: Male

DRUGS (6)
  1. REPAGLINIDE [Concomitant]
  2. METFORMIN HCL [Concomitant]
  3. ZIAGEN [Suspect]
     Indication: HIV INFECTION
     Dosage: ORAL
     Route: 048
     Dates: start: 20110101
  4. FOSAMPRENAVIR CALCIUM [Concomitant]
  5. EPIVIR [Suspect]
     Indication: HIV INFECTION
     Dosage: ORAL
     Route: 048
     Dates: start: 20110101
  6. EPZICOM [Suspect]
     Indication: HIV INFECTION
     Dosage: ORAL
     Route: 048
     Dates: start: 20110601

REACTIONS (4)
  - RENAL FAILURE ACUTE [None]
  - DRUG DISPENSING ERROR [None]
  - DRUG ADMINISTRATION ERROR [None]
  - ASTHENIA [None]
